FAERS Safety Report 10150170 (Version 2)
Quarter: 2014Q2

REPORT INFORMATION
  Report Type: Report from Study
  Country: ES (occurrence: ES)
  Receive Date: 20140502
  Receipt Date: 20140507
  Transmission Date: 20141212
  Serious: Yes (Hospitalization)
  Sender: FDA-Public Use
  Company Number: ES-GLAXOSMITHKLINE-Z0021708A

PATIENT
  Age: 55 Year
  Sex: Male
  Weight: 99 kg

DRUGS (4)
  1. DABRAFENIB [Suspect]
     Indication: NON-SMALL CELL LUNG CANCER
     Dosage: 150MG TWICE PER DAY
     Route: 048
     Dates: start: 20131014
  2. DEXCHLORPHENIRAMINE [Concomitant]
     Indication: PROPHYLAXIS
     Dosage: 2MG TWICE PER DAY
     Route: 048
     Dates: start: 20131125, end: 20131202
  3. AMITRIPTYLINE [Concomitant]
     Indication: PROPHYLAXIS
     Dosage: 25MG PER DAY
     Route: 048
     Dates: start: 20131125, end: 20131202
  4. OMEPRAZOL [Concomitant]
     Indication: PROPHYLAXIS
     Dosage: 20MG PER DAY
     Route: 048
     Dates: start: 20131125, end: 20131202

REACTIONS (1)
  - Pyrexia [Recovered/Resolved]
